FAERS Safety Report 4356023-4 (Version None)
Quarter: 2004Q2

REPORT INFORMATION
  Report Type: 
  Country: None (occurrence: None)
  Receive Date: 20040505
  Receipt Date: 20040426
  Transmission Date: 20050107
  Serious: Yes (Hospitalization)
  Sender: FDA-Public Use
  Company Number: 2004210480US

PATIENT
  Age: 23 Year
  Sex: Female

DRUGS (7)
  1. CELEBREX [Suspect]
     Dosage: 200 MG, QD
     Dates: start: 19990301, end: 20040203
  2. ENBREL [Suspect]
     Indication: JUVENILE ARTHRITIS
     Dosage: 25 MG, 2 IN 2 WEEKS, CYCLIC, SUBCUTANEOUS
     Route: 058
     Dates: start: 20021209
  3. HYDROXYCHLOROQUINE PHOSPHATE (HYDROXYCHLOROQUINE PHOSPHATE) [Concomitant]
  4. PREDNISONE [Concomitant]
  5. LEFLUNOMIDE (LEFLUNOMIDE) [Concomitant]
  6. METHOTREXATE [Concomitant]
  7. MEDROXYPROGESTERONE ACETATE [Concomitant]

REACTIONS (4)
  - ASTHENIA [None]
  - HAEMATURIA [None]
  - IRON DEFICIENCY ANAEMIA [None]
  - MICROCYTIC ANAEMIA [None]
